FAERS Safety Report 18305765 (Version 1)
Quarter: 2020Q3

REPORT INFORMATION
  Report Type: Spontaneous
  Country: US (occurrence: US)
  Receive Date: 20200923
  Receipt Date: 20200923
  Transmission Date: 20201103
  Serious: Yes (Hospitalization)
  Sender: FDA-Public Use
  Company Number: None

PATIENT
  Age: 71 Year
  Sex: Male

DRUGS (1)
  1. WARFARIN (WARFARIN NA 5MG TAB) [Suspect]
     Active Substance: WARFARIN SODIUM
     Indication: DEEP VEIN THROMBOSIS
     Dates: start: 20120802, end: 20180709

REACTIONS (7)
  - Back pain [None]
  - Malaise [None]
  - Pneumonia streptococcal [None]
  - International normalised ratio abnormal [None]
  - End-tidal CO2 decreased [None]
  - Retroperitoneal infection [None]
  - Aortitis [None]

NARRATIVE: CASE EVENT DATE: 20180711
